FAERS Safety Report 22603916 (Version 3)
Quarter: 2024Q1

REPORT INFORMATION
  Report Type: Spontaneous
  Country: DE (occurrence: DE)
  Receive Date: 20230615
  Receipt Date: 20240105
  Transmission Date: 20240410
  Serious: Yes (Hospitalization, Other)
  Sender: FDA-Public Use
  Company Number: DE-ALKEM LABORATORIES LIMITED-DE-ALKEM-2023-06384

PATIENT
  Age: 33 Year
  Sex: Female
  Weight: 70.4 kg

DRUGS (5)
  1. IBUPROFEN [Suspect]
     Active Substance: IBUPROFEN
     Indication: Tumour necrosis factor receptor-associated periodic syndrome
     Dosage: 2400 MILLIGRAM, QD (EVERY 1 DAY)
     Route: 048
  2. ILARIS [Suspect]
     Active Substance: CANAKINUMAB
     Indication: Tumour necrosis factor receptor-associated periodic syndrome
     Dosage: 150 MILLIGRAM
     Route: 058
     Dates: start: 20190224
  3. ILARIS [Suspect]
     Active Substance: CANAKINUMAB
     Dosage: 150 MILLIGRAM
     Route: 058
  4. ILARIS [Suspect]
     Active Substance: CANAKINUMAB
     Dosage: UNK
     Route: 065
     Dates: start: 20220905
  5. PREDNISOLONE [Suspect]
     Active Substance: PREDNISOLONE
     Indication: Tumour necrosis factor receptor-associated periodic syndrome
     Dosage: 150 MILLIGRAM
     Route: 048

REACTIONS (2)
  - Nephrocalcinosis [Recovered/Resolved]
  - Inappropriate schedule of product administration [Unknown]

NARRATIVE: CASE EVENT DATE: 20180401
